FAERS Safety Report 7503219-6 (Version None)
Quarter: 2011Q2

REPORT INFORMATION
  Report Type: 
  Country: None (occurrence: None)
  Receive Date: 20110525
  Receipt Date: 20110103
  Transmission Date: 20111010
  Serious: No
  Sender: FDA-Public Use
  Company Number: A0902510A

PATIENT
  Age: 67 Year
  Sex: Female

DRUGS (18)
  1. ALBUTEROL SULFATE AUTOHALER [Concomitant]
     Route: 055
  2. SPIRIVA [Concomitant]
  3. METHOTREXATE [Concomitant]
  4. SIMVASTATIN [Concomitant]
  5. CEFTIN [Concomitant]
  6. HYDROCODONE [Concomitant]
  7. NASONEX [Concomitant]
  8. ADVAIR DISKUS 100/50 [Concomitant]
  9. REQUIP [Concomitant]
  10. OMEPRAZOLE [Concomitant]
  11. CLINDAMYCIN [Concomitant]
  12. BACTROBAN [Suspect]
     Dosage: 2PCT TWICE PER DAY
     Route: 045
     Dates: start: 20090101, end: 20100102
  13. UNKNOWN MEDICATION [Concomitant]
  14. TESSALON [Concomitant]
  15. BELLADONA [Concomitant]
  16. BIAXIN [Concomitant]
  17. PREDNISONE [Concomitant]
  18. REGLAN [Concomitant]

REACTIONS (2)
  - COUGH [None]
  - SINUSITIS [None]
